FAERS Safety Report 17082948 (Version 1)
Quarter: 2019Q4

REPORT INFORMATION
  Report Type: Report from Study
  Country: CA (occurrence: CA)
  Receive Date: 20191127
  Receipt Date: 20191127
  Transmission Date: 20200122
  Serious: Yes (Hospitalization)
  Sender: FDA-Public Use
  Company Number: CA-FERRINGPH-2019FE07761

PATIENT
  Sex: Male

DRUGS (1)
  1. DEGARELIX [Suspect]
     Active Substance: DEGARELIX
     Indication: HORMONE-DEPENDENT PROSTATE CANCER
     Dosage: 80 MG, UNK
     Route: 058
     Dates: start: 20190926

REACTIONS (3)
  - Haemoglobin decreased [Unknown]
  - Cellulitis [Unknown]
  - Pyrexia [Unknown]

NARRATIVE: CASE EVENT DATE: 2019
